FAERS Safety Report 4516258-4 (Version None)
Quarter: 2004Q4

REPORT INFORMATION
  Report Type: 
  Country: None (occurrence: None)
  Receive Date: 20041006
  Receipt Date: 20040602
  Transmission Date: 20050328
  Serious: Yes (Other)
  Sender: FDA-Public Use
  Company Number: 04-206-0150

PATIENT
  Sex: Female

DRUGS (6)
  1. METHOTREXATE [Suspect]
     Indication: RHEUMATOID ARTHRITIS
     Dosage: 17.5 MG IM DAILY
     Dates: start: 19970101, end: 20040101
  2. IBUPROFEN [Concomitant]
  3. VITAMIN E [Concomitant]
  4. VITAMIN C [Concomitant]
  5. FOLIC ACID [Concomitant]
  6. LIPITOR [Concomitant]

REACTIONS (1)
  - COUGH [None]
